FAERS Safety Report 10876805 (Version 2)
Quarter: 2021Q1

REPORT INFORMATION
  Report Type: Spontaneous
  Country: US (occurrence: US)
  Receive Date: 20150302
  Receipt Date: 20210107
  Transmission Date: 20210419
  Serious: No
  Sender: FDA-Public Use
  Company Number: US-ASTRAZENECA-2015SE16612

PATIENT
  Age: 39 Year
  Sex: Female
  Weight: 70.3 kg

DRUGS (1)
  1. CRESTOR [Suspect]
     Active Substance: ROSUVASTATIN CALCIUM
     Route: 048
     Dates: start: 1990

REACTIONS (22)
  - Carotid artery disease [Not Recovered/Not Resolved]
  - Injection site haemorrhage [Recovered/Resolved]
  - Blood parathyroid hormone increased [Not Recovered/Not Resolved]
  - Urinary tract infection [Recovered/Resolved]
  - Body height decreased [Not Recovered/Not Resolved]
  - Back disorder [Not Recovered/Not Resolved]
  - Renal disorder [Not Recovered/Not Resolved]
  - Immune system disorder [Not Recovered/Not Resolved]
  - Fatigue [Recovered/Resolved]
  - Diverticulitis [Unknown]
  - Headache [Not Recovered/Not Resolved]
  - Blood calcium increased [Not Recovered/Not Resolved]
  - Pain [Not Recovered/Not Resolved]
  - Fatigue [Unknown]
  - Muscle fatigue [Recovered/Resolved]
  - Kyphosis [Not Recovered/Not Resolved]
  - Dysstasia [Recovered/Resolved]
  - Tachycardia [Recovered/Resolved]
  - Limb discomfort [Not Recovered/Not Resolved]
  - Articular calcification [Not Recovered/Not Resolved]
  - Scoliosis [Not Recovered/Not Resolved]
  - Diabetes mellitus [Not Recovered/Not Resolved]

NARRATIVE: CASE EVENT DATE: 1990
